FAERS Safety Report 19885650 (Version 2)
Quarter: 2022Q4

REPORT INFORMATION
  Report Type: Spontaneous
  Country: US (occurrence: US)
  Receive Date: 20210927
  Receipt Date: 20221020
  Transmission Date: 20230112
  Serious: No
  Sender: FDA-Public Use
  Company Number: US-CELLTRION INC.-2021US004199

PATIENT

DRUGS (9)
  1. INFLECTRA [Suspect]
     Active Substance: INFLIXIMAB-DYYB
     Indication: Product used for unknown indication
     Dosage: 400 MG, (INJECT 400MG INTO THE VEIN ONCE)
     Route: 051
  2. ESTRACE [Concomitant]
     Active Substance: ESTRADIOL
  3. AZULFIDINE [Concomitant]
     Active Substance: SULFASALAZINE
  4. FERGON [Concomitant]
     Active Substance: FERROUS GLUCONATE
  5. LEXAPRO [Concomitant]
     Active Substance: ESCITALOPRAM OXALATE
  6. DESYREL [Concomitant]
     Active Substance: TRAZODONE HYDROCHLORIDE
  7. PROMETRIUM [Concomitant]
     Active Substance: PROGESTERONE
  8. CEFIXIME [Concomitant]
     Active Substance: CEFIXIME
  9. ULTRAM [Concomitant]
     Active Substance: TRAMADOL HYDROCHLORIDE

REACTIONS (2)
  - Intentional dose omission [Unknown]
  - Unevaluable event [Unknown]

NARRATIVE: CASE EVENT DATE: 20210301
